FAERS Safety Report 7621459-2 (Version None)
Quarter: 2011Q3

REPORT INFORMATION
  Report Type: 
  Country: None (occurrence: None)
  Receive Date: 20110719
  Receipt Date: 20110713
  Transmission Date: 20111222
  Serious: Yes (Other)
  Sender: FDA-Public Use
  Company Number: JP-PFIZER INC-2011149123

PATIENT
  Age: 41 Year
  Sex: Female

DRUGS (1)
  1. XALATAN [Suspect]
     Indication: GLAUCOMA
     Dosage: UNK
     Route: 047
     Dates: start: 20110401

REACTIONS (3)
  - EYELID OEDEMA [None]
  - LACRIMATION INCREASED [None]
  - INTRAOCULAR PRESSURE INCREASED [None]
